FAERS Safety Report 15926980 (Version 3)
Quarter: 2020Q1

REPORT INFORMATION
  Report Type: Spontaneous
  Country: US (occurrence: US)
  Receive Date: 20190205
  Receipt Date: 20200129
  Transmission Date: 20200409
  Serious: No
  Sender: FDA-Public Use
  Company Number: US-ALLERGAN-1851583US

PATIENT
  Age: 55 Year
  Sex: Female
  Weight: 97.51 kg

DRUGS (7)
  1. AIMOVIG [Suspect]
     Active Substance: ERENUMAB-AOOE
     Indication: MIGRAINE
     Dosage: 140 MG, Q MONTH
     Route: 058
     Dates: start: 201902
  2. TRAMADOL. [Concomitant]
     Active Substance: TRAMADOL
     Dosage: UNK
  3. TRIPTAN [Concomitant]
     Route: 065
  4. BOTOX [Suspect]
     Active Substance: ONABOTULINUMTOXINA
     Indication: PRODUCT USED FOR UNKNOWN INDICATION
     Dosage: UNK, SINGLE
     Route: 030
  5. AIMOVIG [Suspect]
     Active Substance: ERENUMAB-AOOE
     Dosage: 70 MG, Q MONTH
     Route: 058
     Dates: start: 20180901, end: 201901
  6. TOPAMAX [Concomitant]
     Active Substance: TOPIRAMATE
     Indication: PRODUCT USED FOR UNKNOWN INDICATION
     Route: 065
  7. IMITREX [Concomitant]
     Active Substance: SUMATRIPTAN SUCCINATE
     Dosage: UNK

REACTIONS (14)
  - Asthenia [Unknown]
  - Swelling face [Unknown]
  - Viral infection [Unknown]
  - Diarrhoea [Not Recovered/Not Resolved]
  - Aphasia [Unknown]
  - Lethargy [Unknown]
  - Constipation [Unknown]
  - Decreased appetite [Unknown]
  - Fatigue [Not Recovered/Not Resolved]
  - Hypersomnia [Unknown]
  - Mental impairment [Unknown]
  - Parotitis [Recovered/Resolved]
  - Confusional state [Unknown]
  - Feeling abnormal [Unknown]

NARRATIVE: CASE EVENT DATE: 201809
